FAERS Safety Report 22105343 (Version 1)
Quarter: 2023Q1

REPORT INFORMATION
  Report Type: Spontaneous
  Country: CA (occurrence: CA)
  Receive Date: 20230317
  Receipt Date: 20230317
  Transmission Date: 20230418
  Serious: Yes (Death)
  Sender: FDA-Public Use
  Company Number: ENDG23-01234

PATIENT

DRUGS (1)
  1. DANTRIUM [Suspect]
     Active Substance: DANTROLENE SODIUM
     Indication: Product used for unknown indication
     Dosage: 50 MG, QID (ONE EVERY SIX HOURS)
     Route: 042

REACTIONS (2)
  - Death [Fatal]
  - Expired product administered [Unknown]
